APPROVED DRUG PRODUCT: EOHILIA
Active Ingredient: BUDESONIDE
Strength: 2MG/10ML
Dosage Form/Route: SUSPENSION;ORAL
Application: N213976 | Product #001
Applicant: TAKEDA PHARMACEUTICALS USA INC
Approved: Feb 9, 2024 | RLD: Yes | RS: Yes | Type: RX

PATENTS:
Patent 9119863 | Expires: Nov 9, 2026
Patent 8975243 | Expires: Nov 9, 2026
Patent 8497258 | Expires: Nov 9, 2026
Patent 8324192 | Expires: Aug 3, 2029
Patent 11564934 | Expires: Jan 10, 2039
Patent 11357859 | Expires: Nov 12, 2028
Patent 11197822 | Expires: Nov 9, 2026
Patent 11413296 | Expires: Nov 9, 2026
Patent 10293052 | Expires: Nov 22, 2028
Patent 11260064 | Expires: Jan 10, 2039
Patent 8679545 | Expires: Nov 9, 2026
Patent 9050368 | Expires: Aug 1, 2029

EXCLUSIVITY:
Code: NP | Date: Feb 9, 2027
Code: ODE-466 | Date: Feb 9, 2031